FAERS Safety Report 16056468 (Version 2)
Quarter: 2019Q2

REPORT INFORMATION
  Report Type: Spontaneous
  Country: US (occurrence: US)
  Receive Date: 20190311
  Receipt Date: 20190402
  Transmission Date: 20190711
  Serious: Yes (Death, Hospitalization)
  Sender: FDA-Public Use
  Company Number: US-PFIZER INC-2019083206

PATIENT
  Age: 71 Year
  Sex: Female
  Weight: 109.75 kg

DRUGS (1)
  1. IBRANCE [Suspect]
     Active Substance: PALBOCICLIB
     Indication: BREAST CANCER METASTATIC
     Dosage: 100 MG, CYCLIC [D 1-21 Q 28 DAYS]
     Route: 048
     Dates: start: 20190204, end: 20190224

REACTIONS (7)
  - Pelvic fracture [Recovering/Resolving]
  - Hip fracture [Recovering/Resolving]
  - Death [Fatal]
  - Upper limb fracture [Recovering/Resolving]
  - Fatigue [Unknown]
  - Fall [Recovering/Resolving]
  - White blood cell count decreased [Unknown]

NARRATIVE: CASE EVENT DATE: 2019
